FAERS Safety Report 5124197-3 (Version None)
Quarter: 2006Q4

REPORT INFORMATION
  Report Type: 
  Country: None (occurrence: None)
  Receive Date: 20061010
  Receipt Date: 20060811
  Transmission Date: 20070319
  Serious: No
  Sender: FDA-Public Use
  Company Number: US-BRISTOL-MYERS SQUIBB COMPANY-13472550

PATIENT
  Age: 54 Year
  Sex: Female
  Weight: 77 kg

DRUGS (5)
  1. AVAPRO [Suspect]
     Indication: HYPERTENSION
     Dosage: DOSE INCREASED TO ONE TABLET BID APPROX. ONE MONTH AGO
     Dates: start: 20060501
  2. VYTORIN [Concomitant]
  3. ZOLOFT [Concomitant]
  4. SOMA [Concomitant]
  5. ASPIRIN [Concomitant]
     Indication: PAIN

REACTIONS (1)
  - CONTUSION [None]
